FAERS Safety Report 5948589-5 (Version None)
Quarter: 2008Q4

REPORT INFORMATION
  Report Type: 
  Country: None (occurrence: None)
  Receive Date: 20081107
  Receipt Date: 20081023
  Transmission Date: 20090506
  Serious: Yes (Other)
  Sender: FDA-Public Use
  Company Number: 035728

PATIENT
  Age: 31 Year
  Sex: Female

DRUGS (4)
  1. CLARAVIS [Suspect]
     Dosage: 30 MG, BID, ORAL, 30 MG, BID, ORAL
     Route: 048
     Dates: start: 20080702, end: 20080817
  2. CLARAVIS [Suspect]
     Dosage: 30 MG, BID, ORAL, 30 MG, BID, ORAL
     Route: 048
     Dates: start: 20080331
  3. SOTRET [Suspect]
     Dosage: 30 MG, BID, ORAL
     Route: 048
     Dates: start: 20080430
  4. ACCUTANE [Suspect]
     Dosage: 30 MG, BID, ORAL
     Route: 048
     Dates: start: 20080602

REACTIONS (1)
  - PREGNANCY [None]
